FAERS Safety Report 8807393 (Version 1)
Quarter: 2012Q4

REPORT INFORMATION
  Report Type: 
  Country: US (occurrence: US)
  Receive Date: 20120925
  Receipt Date: 20120925
  Transmission Date: 20130627
  Serious: No
  Sender: FDA-Public Use
  Company Number: US-MYLANLABS-2011S1022192

PATIENT
  Age: 92 Year
  Sex: Female

DRUGS (1)
  1. NITROGLYCERIN TRANSDERMAL SYSTEM [Suspect]
     Indication: BLOOD PRESSURE INCREASED
     Dosage: Changed q24h
     Route: 062

REACTIONS (1)
  - Application site pain [Not Recovered/Not Resolved]
